FAERS Safety Report 11428630 (Version 1)
Quarter: 2015Q3

REPORT INFORMATION
  Report Type: Spontaneous
  Country: None (occurrence: None)
  Receive Date: 20150827
  Receipt Date: 20150827
  Transmission Date: 20151125
  Serious: Yes (Life-Threatening, Hospitalization, Disabling)
  Sender: FDA-Public Use
  Company Number: None

PATIENT
  Age: 26 Year
  Sex: Female
  Weight: 75 kg

DRUGS (2)
  1. 68MG IMPLANT/INPLANTING ETONOGESTREL [Suspect]
     Active Substance: ETONOGESTREL
  2. ANTIDEPRESSANTS [Concomitant]
     Active Substance: UNSPECIFIED INGREDIENT

REACTIONS (4)
  - Cerebrovascular accident [None]
  - Drug ineffective [None]
  - Drug dependence [None]
  - Depression [None]

NARRATIVE: CASE EVENT DATE: 20150801
